FAERS Safety Report 7077898-4 (Version None)
Quarter: 2010Q4

REPORT INFORMATION
  Report Type: 
  Country: None (occurrence: None)
  Receive Date: 20101101
  Receipt Date: 20101019
  Transmission Date: 20110411
  Serious: Yes (Hospitalization)
  Sender: FDA-Public Use
  Company Number: FR-ELI_LILLY_AND_COMPANY-FR201009001400

PATIENT
  Sex: Male
  Weight: 81 kg

DRUGS (5)
  1. ZYPADHERA [Suspect]
     Indication: BIPOLAR DISORDER
     Dosage: 300 MG, 2/M
     Route: 030
     Dates: start: 20100809, end: 20100906
  2. ZYPREXA [Suspect]
     Indication: BIPOLAR DISORDER
     Dosage: 15 MG, DAILY (1/D)
     Route: 048
     Dates: end: 20100808
  3. DEPAKOTE [Concomitant]
     Indication: BIPOLAR DISORDER
     Dosage: 500 MG, 2/D
     Route: 048
     Dates: start: 20100505, end: 20100906
  4. TERCIAN [Concomitant]
     Indication: BIPOLAR DISORDER
     Dosage: 25 MG, DAILY (1/D)
     Route: 048
     Dates: start: 20100505, end: 20100906
  5. FORLAX [Concomitant]
     Indication: CONSTIPATION
     Dosage: 20 G, DAILY (1/D)
     Route: 048

REACTIONS (5)
  - ANTIPSYCHOTIC DRUG LEVEL ABOVE THERAPEUTIC [None]
  - COMA [None]
  - CONFUSIONAL STATE [None]
  - CONVULSION [None]
  - OFF LABEL USE [None]
